FAERS Safety Report 10263202 (Version 2)
Quarter: 2014Q2

REPORT INFORMATION
  Report Type: Report from Study
  Country: US (occurrence: US)
  Receive Date: 20140626
  Receipt Date: 20140626
  Transmission Date: 20141212
  Serious: Yes (Death)
  Sender: FDA-Public Use
  Company Number: US-MYLANLABS-2014S1007008

PATIENT
  Age: 60 Year
  Sex: Male
  Weight: 87.09 kg

DRUGS (7)
  1. CLOZAPINE TABLETS [Suspect]
     Indication: SCHIZOPHRENIA
     Route: 048
     Dates: end: 20140305
  2. TRAZODONE [Concomitant]
     Route: 048
  3. PROZAC [Concomitant]
     Route: 048
  4. CLONAZEPAM [Concomitant]
     Route: 048
  5. CLONAZEPAM [Concomitant]
     Route: 048
  6. MORPHINE [Concomitant]
  7. ATIVAN [Concomitant]
     Route: 048

REACTIONS (1)
  - Lung neoplasm malignant [Fatal]
